FAERS Safety Report 17501391 (Version 1)
Quarter: 2020Q1

REPORT INFORMATION
  Report Type: Spontaneous
  Country: NO (occurrence: NO)
  Receive Date: 20200305
  Receipt Date: 20200305
  Transmission Date: 20200409
  Serious: Yes (Death, Hospitalization, Other)
  Sender: FDA-Public Use
  Company Number: NO-MYLANLABS-2020M1023578

PATIENT
  Age: 70 Year
  Sex: Male

DRUGS (28)
  1. RITUXIMAB. [Interacting]
     Active Substance: RITUXIMAB
     Indication: PRODUCT USED FOR UNKNOWN INDICATION
     Dosage: UNK UNK, Q3W (TOTAL OF 3 TREATMENTS)
     Route: 065
     Dates: start: 20090611, end: 20090723
  2. MITOXANTRONE [Concomitant]
     Active Substance: MITOXANTRONE HYDROCHLORIDE
     Dosage: UNK UNK, Q3W (TOTAL OF 3 TREATMENTS)
     Route: 065
     Dates: start: 20090611, end: 20090723
  3. PENICILLIN G                       /00000901/ [Concomitant]
     Active Substance: PENICILLIN G
     Indication: PNEUMONIA BACTERIAL
     Dosage: UNK
     Route: 042
     Dates: start: 20090216
  4. VINCRISTINE [Concomitant]
     Active Substance: VINCRISTINE
     Indication: DIFFUSE LARGE B-CELL LYMPHOMA
     Dosage: UNK UNK, Q3W
     Route: 065
     Dates: start: 20090611, end: 20090723
  5. NEULASTA [Interacting]
     Active Substance: PEGFILGRASTIM
     Dosage: UNK
     Route: 065
  6. BENZYLPENICILLIN [Concomitant]
     Active Substance: PENICILLIN G
     Indication: PNEUMONIA BACTERIAL
     Dosage: UNK UNK, UNK
     Route: 042
  7. CYTARABINE. [Concomitant]
     Active Substance: CYTARABINE
     Indication: DIFFUSE LARGE B-CELL LYMPHOMA
     Dosage: 1 DF, UNK
     Route: 065
     Dates: start: 20090909, end: 20090909
  8. SULFAMETHOXAZOLE AND TRIMETHOPRIM [Concomitant]
     Active Substance: SULFAMETHOXAZOLE\TRIMETHOPRIM
     Indication: PRODUCT USED FOR UNKNOWN INDICATION
     Dosage: UNK UNK, UNK
     Route: 065
  9. NEULASTA [Interacting]
     Active Substance: PEGFILGRASTIM
     Dosage: UNK
     Route: 065
  10. GARAMYCIN [Concomitant]
     Active Substance: GENTAMICIN SULFATE
     Indication: PNEUMONIA BACTERIAL
     Dosage: UNK
     Route: 042
     Dates: start: 20090916
  11. GARAMYCIN [Concomitant]
     Active Substance: GENTAMICIN SULFATE
     Dosage: UNK UNK, UNK
     Route: 042
  12. PREDNISOLON                        /00016201/ [Concomitant]
     Active Substance: PREDNISOLONE
     Indication: DIFFUSE LARGE B-CELL LYMPHOMA
     Dosage: UNK UNK, Q3W
     Route: 065
     Dates: start: 20090611, end: 20090909
  13. CYCLOPHOSPHAMIDE. [Interacting]
     Active Substance: CYCLOPHOSPHAMIDE
     Indication: DIFFUSE LARGE B-CELL LYMPHOMA
     Dosage: UNK UNK, Q3W (TOTAL OF 3 TREATMENTS)
     Route: 065
     Dates: start: 20090611, end: 20090723
  14. MERONEM [Concomitant]
     Active Substance: MEROPENEM
     Indication: PRODUCT USED FOR UNKNOWN INDICATION
     Dosage: UNK
     Route: 065
     Dates: start: 20090919
  15. VINCRISTINE SULFATE. [Concomitant]
     Active Substance: VINCRISTINE SULFATE
     Indication: PRODUCT USED FOR UNKNOWN INDICATION
     Dosage: UNK
     Route: 065
     Dates: end: 20090723
  16. PREDNISOLONE. [Concomitant]
     Active Substance: PREDNISOLONE
     Indication: PRODUCT USED FOR UNKNOWN INDICATION
     Dosage: 1 DF, TIW
     Route: 065
     Dates: start: 20090611, end: 20090909
  17. DIFLUCAN [Concomitant]
     Active Substance: FLUCONAZOLE
     Indication: PRODUCT USED FOR UNKNOWN INDICATION
     Dosage: UNK UNK, UNK
     Route: 065
  18. MITOXANTRONE [Suspect]
     Active Substance: MITOXANTRONE HYDROCHLORIDE
     Indication: PRODUCT USED FOR UNKNOWN INDICATION
     Dosage: UNK UNK, Q3W
     Route: 065
     Dates: start: 20090611, end: 20090723
  19. NEULASTA [Interacting]
     Active Substance: PEGFILGRASTIM
     Indication: DIFFUSE LARGE B-CELL LYMPHOMA
     Dosage: UNK UNK, Q3W
     Route: 065
  20. MITOXANTRONE HYDROCHLORIDE. [Concomitant]
     Active Substance: MITOXANTRONE HYDROCHLORIDE
     Indication: PRODUCT USED FOR UNKNOWN INDICATION
     Dosage: UNK
     Route: 065
     Dates: end: 20090723
  21. MEROPENEM. [Concomitant]
     Active Substance: MEROPENEM
     Indication: PRODUCT USED FOR UNKNOWN INDICATION
     Dosage: UNK
     Route: 065
  22. ETOPOSIDE. [Concomitant]
     Active Substance: ETOPOSIDE
     Indication: DIFFUSE LARGE B-CELL LYMPHOMA
     Dosage: UNK UNK, QD
     Route: 065
     Dates: start: 200909, end: 200909
  23. MABTHERA [Interacting]
     Active Substance: RITUXIMAB
     Indication: PRODUCT USED FOR UNKNOWN INDICATION
     Dosage: UNK UNK, Q3W (TOTAL OF 3 TREATMENTS)
     Route: 065
     Dates: start: 20090611, end: 20090723
  24. FLUCONAZOLE. [Suspect]
     Active Substance: FLUCONAZOLE
     Indication: PRODUCT USED FOR UNKNOWN INDICATION
     Dosage: UNK
     Route: 065
     Dates: start: 20090916
  25. SENDOXAN [Concomitant]
     Active Substance: CYCLOPHOSPHAMIDE
     Indication: PRODUCT USED FOR UNKNOWN INDICATION
     Dosage: UNK
     Route: 065
  26. BACTRIM [Concomitant]
     Active Substance: SULFAMETHOXAZOLE\TRIMETHOPRIM
     Indication: PRODUCT USED FOR UNKNOWN INDICATION
     Dosage: UNK
     Route: 065
     Dates: start: 20091001
  27. ETOPOSIDE. [Concomitant]
     Active Substance: ETOPOSIDE
     Dosage: 1 DF, UNK
     Route: 065
     Dates: start: 20090909, end: 20090909
  28. MITOXANTRONE [Concomitant]
     Active Substance: MITOXANTRONE HYDROCHLORIDE
     Indication: PRODUCT USED FOR UNKNOWN INDICATION
     Dosage: 1 DF, TIW
     Route: 065
     Dates: start: 20090611, end: 20090723

REACTIONS (5)
  - Pneumocystis jirovecii pneumonia [Unknown]
  - Drug interaction [Unknown]
  - Respiratory failure [Fatal]
  - Pneumonitis [Unknown]
  - Lung opacity [Fatal]

NARRATIVE: CASE EVENT DATE: 20090809
